FAERS Safety Report 8840266 (Version 3)
Quarter: 2013Q2

REPORT INFORMATION
  Report Type: Report from Study
  Country: JP (occurrence: JP)
  Receive Date: 20121015
  Receipt Date: 20130510
  Transmission Date: 20140414
  Serious: Yes (Other)
  Sender: FDA-Public Use
  Company Number: JP-009507513-1210JPN001566

PATIENT
  Age: 46 Year
  Sex: Female
  Weight: 50 kg

DRUGS (7)
  1. PEGINTRON [Suspect]
     Indication: CHRONIC HEPATITIS C
     Dosage: 1.5 MICROGRAM PER KILOGRAM, QW
     Route: 058
     Dates: start: 20120731, end: 20130109
  2. REBETOL [Suspect]
     Indication: CHRONIC HEPATITIS C
     Dosage: 400 MG, QD
     Route: 048
     Dates: start: 20120731, end: 20120828
  3. REBETOL [Suspect]
     Dosage: 200MG/DAY AND 400MG/DAY ON ALTERNATE DAYS
     Route: 048
     Dates: start: 20120829, end: 20121127
  4. REBETOL [Suspect]
     Dosage: 400 UNK, UNK
     Route: 048
     Dates: start: 20121128, end: 20130114
  5. TELAVIC [Suspect]
     Indication: CHRONIC HEPATITIS C
     Dosage: 1500 MG, , QD
     Route: 048
     Dates: start: 20120731, end: 20121022
  6. GASTER [Concomitant]
     Indication: PROPHYLAXIS
     Dosage: 20 MG, QD
     Route: 048
     Dates: start: 20120913
  7. HYALEIN [Concomitant]
     Indication: PROPHYLAXIS
     Dosage: UNK, PRN
     Route: 031
     Dates: start: 20120912, end: 20120912

REACTIONS (1)
  - Erythema multiforme [Recovering/Resolving]
